FAERS Safety Report 24636907 (Version 6)
Quarter: 2025Q1

REPORT INFORMATION
  Report Type: Spontaneous
  Country: US (occurrence: US)
  Receive Date: 20241119
  Receipt Date: 20250122
  Transmission Date: 20250408
  Serious: No
  Sender: PFIZER
  Company Number: US-PFIZER INC-202400299491

PATIENT
  Age: 5 Year
  Sex: Male
  Weight: 18.141 kg

DRUGS (1)
  1. GENOTROPIN [Suspect]
     Active Substance: SOMATROPIN
     Indication: Short stature
     Dosage: 0.6 MG, 1X/DAY
     Route: 058
     Dates: start: 20240717

REACTIONS (2)
  - Drug dose omission by device [Unknown]
  - Device leakage [Unknown]
